FAERS Safety Report 16837974 (Version 1)
Quarter: 2019Q3

REPORT INFORMATION
  Report Type: Spontaneous
  Country: JP (occurrence: JP)
  Receive Date: 20190923
  Receipt Date: 20190923
  Transmission Date: 20191005
  Serious: No
  Sender: FDA-Public Use
  Company Number: JP-BEH-2019106553

PATIENT
  Age: 4 Year
  Sex: Female

DRUGS (1)
  1. HIZENTRA [Suspect]
     Active Substance: HUMAN IMMUNOGLOBULIN G
     Dosage: 20 MILLILITER, QW
     Route: 058
     Dates: start: 20190902

REACTIONS (3)
  - Pruritus [Unknown]
  - Infusion site nodule [Unknown]
  - Pain [Unknown]

NARRATIVE: CASE EVENT DATE: 20190902
